FAERS Safety Report 20615761 (Version 1)
Quarter: 2022Q1

REPORT INFORMATION
  Report Type: Report from Study
  Country: EG (occurrence: EG)
  Receive Date: 20220321
  Receipt Date: 20220321
  Transmission Date: 20220423
  Serious: Yes (Other)
  Sender: FDA-Public Use
  Company Number: EG-NOVARTISPH-NVSC2022EG062673

PATIENT
  Age: 34 Year
  Sex: Female

DRUGS (8)
  1. GILENYA [Suspect]
     Active Substance: FINGOLIMOD HYDROCHLORIDE
     Indication: Multiple sclerosis
     Dosage: 0.5 MG, QD
     Route: 048
     Dates: start: 202110
  2. VITAMIN D3 [Concomitant]
     Active Substance: CHOLECALCIFEROL
     Indication: Myalgia
     Dosage: UNK UNK, QD
     Route: 048
     Dates: start: 2016
  3. VITAMIN D3 [Concomitant]
     Active Substance: CHOLECALCIFEROL
     Indication: Movement disorder
  4. CALCIUM [Concomitant]
     Active Substance: CALCIUM
     Indication: Vitamin D deficiency
     Dosage: UNK UNK, QD
     Route: 065
     Dates: start: 2016
  5. PK-MERZ [Concomitant]
     Active Substance: AMANTADINE
     Indication: Movement disorder
     Dosage: UNK, BID
     Route: 048
     Dates: start: 2020
  6. BENFOTIAMINE\CYANOCOBALAMIN\PYRIDOXINE HYDROCHLORIDE [Concomitant]
     Active Substance: BENFOTIAMINE\CYANOCOBALAMIN\PYRIDOXINE HYDROCHLORIDE
     Indication: Neuralgia
     Dosage: UNK UNK, QD
     Route: 048
     Dates: start: 2016
  7. OMEGA 3 [Concomitant]
     Active Substance: CAPSAICIN
     Indication: Vitamin supplementation
     Dosage: UNK UNK, QD
     Route: 048
     Dates: start: 2021
  8. DEPOVIT B12 [Concomitant]
     Indication: Neuralgia
     Dosage: UNK, EVERY THREE DAYS
     Route: 065
     Dates: start: 2016

REACTIONS (2)
  - Seizure [Recovering/Resolving]
  - Pelvic pain [Recovering/Resolving]

NARRATIVE: CASE EVENT DATE: 20220301
